FAERS Safety Report 4545062-6 (Version None)
Quarter: 2005Q1

REPORT INFORMATION
  Report Type: 
  Country: None (occurrence: None)
  Receive Date: 20050103
  Receipt Date: 20041220
  Transmission Date: 20050727
  Serious: Yes (Other)
  Sender: FDA-Public Use
  Company Number: 2004106812

PATIENT
  Age: 95 Year
  Sex: Female

DRUGS (1)
  1. DIFLUCAN [Suspect]
     Indication: ANTIFUNGAL PROPHYLAXIS
     Dosage: 100 MG (1 D), ORAL
     Route: 048

REACTIONS (1)
  - CLOSTRIDIUM COLITIS [None]
